FAERS Safety Report 9713051 (Version 2)
Quarter: 2014Q2

REPORT INFORMATION
  Report Type: Spontaneous
  Country: US (occurrence: US)
  Receive Date: 20131126
  Receipt Date: 20140510
  Transmission Date: 20141212
  Serious: No
  Sender: FDA-Public Use
  Company Number: US-BRISTOL-MYERS SQUIBB COMPANY-19397207

PATIENT
  Age: 76 Year
  Sex: Male
  Weight: 120.18 kg

DRUGS (9)
  1. BYDUREON  2MG SUSPENSION [Suspect]
     Indication: TYPE 2 DIABETES MELLITUS
     Route: 058
     Dates: start: 20130904, end: 201311
  2. WARFARIN [Concomitant]
  3. FENOFIBRATE [Concomitant]
  4. KLOR-CON [Concomitant]
  5. VITAMIN D [Concomitant]
  6. ASPIRIN [Concomitant]
  7. GABAPENTIN [Concomitant]
  8. LEVOTHYROXINE [Concomitant]
  9. SIMVASTATIN [Concomitant]

REACTIONS (2)
  - Myalgia [Recovered/Resolved]
  - Gastrooesophageal reflux disease [Recovered/Resolved]
